FAERS Safety Report 20872678 (Version 1)
Quarter: 2022Q2

REPORT INFORMATION
  Report Type: Spontaneous
  Country: US (occurrence: None)
  Receive Date: 20220525
  Receipt Date: 20220525
  Transmission Date: 20220720
  Serious: No
  Sender: FDA-Public Use
  Company Number: None

PATIENT
  Age: 75 Year
  Sex: Male
  Weight: 72 kg

DRUGS (6)
  1. RHOPRESSA [Suspect]
     Active Substance: NETARSUDIL MESYLATE
     Indication: Glaucoma
     Dosage: OTHER QUANTITY : 1 DROP(S);?FREQUENCY : AT BEDTIME;?
     Route: 047
     Dates: start: 20220426, end: 20220509
  2. LUMIGAN [Concomitant]
     Active Substance: BIMATOPROST
  3. TIMOLOL [Concomitant]
     Active Substance: TIMOLOL
  4. DORZOLAMIDE [Concomitant]
     Active Substance: DORZOLAMIDE
  5. VITAMINS [Concomitant]
     Active Substance: VITAMINS
  6. Claritin (generic) [Concomitant]

REACTIONS (2)
  - Dry eye [None]
  - Eye pain [None]

NARRATIVE: CASE EVENT DATE: 20220509
